FAERS Safety Report 23502595 (Version 1)
Quarter: 2024Q1

REPORT INFORMATION
  Report Type: Spontaneous
  Country: US (occurrence: US)
  Receive Date: 20240208
  Receipt Date: 20240208
  Transmission Date: 20240410
  Serious: No
  Sender: FDA-Public Use
  Company Number: US-INTRA-CELLULAR THERAPIES, INC.-2023ICT00634

PATIENT
  Sex: Male

DRUGS (1)
  1. CAPLYTA [Suspect]
     Active Substance: LUMATEPERONE
     Indication: Bipolar II disorder
     Dosage: UNK

REACTIONS (3)
  - Dissociation [Unknown]
  - Disorientation [Unknown]
  - Sedation [Unknown]
